FAERS Safety Report 9832077 (Version 2)
Quarter: 2014Q1

REPORT INFORMATION
  Report Type: Report from Study
  Country: CA (occurrence: CA)
  Receive Date: 20140121
  Receipt Date: 20140327
  Transmission Date: 20141002
  Serious: No
  Sender: FDA-Public Use
  Company Number: PHHY2014CA005859

PATIENT
  Age: 73 Year
  Sex: Female

DRUGS (3)
  1. TASIGNA [Suspect]
     Indication: CHRONIC MYELOID LEUKAEMIA
     Dosage: 300 MG, BID
     Route: 048
     Dates: start: 201311, end: 20140106
  2. COUMADIN//WARFARIN SODIUM [Concomitant]
     Dosage: UNK UKN, UNK
  3. ELIQUIS [Concomitant]
     Dosage: UNK UKN, UNK

REACTIONS (6)
  - Gait disturbance [Unknown]
  - Oedema peripheral [Unknown]
  - Pain in extremity [Unknown]
  - Local swelling [Unknown]
  - Gout [Unknown]
  - Dyspepsia [Unknown]
